FAERS Safety Report 11289681 (Version 1)
Quarter: 2015Q3

REPORT INFORMATION
  Report Type: Spontaneous
  Country: SA (occurrence: SA)
  Receive Date: 20150721
  Receipt Date: 20150721
  Transmission Date: 20151125
  Serious: Yes (Death, Other)
  Sender: FDA-Public Use
  Company Number: SA-BAYER-2015-375511

PATIENT
  Age: 13 Year
  Sex: Female

DRUGS (1)
  1. SORAFENIB (RAF KINASE INHIBITOR) [Suspect]
     Active Substance: SORAFENIB
     Indication: ANGIOSARCOMA

REACTIONS (4)
  - Off label use [None]
  - Drug ineffective for unapproved indication [None]
  - Respiratory disorder [None]
  - Multi-organ failure [Fatal]
